FAERS Safety Report 10547742 (Version 1)
Quarter: 2014Q4

REPORT INFORMATION
  Report Type: Spontaneous
  Country: FR (occurrence: None)
  Receive Date: 20141024
  Receipt Date: 20141024
  Transmission Date: 20150529
  Serious: Yes (Other)
  Sender: FDA-Public Use
  Company Number: CLINIGEN-003436

PATIENT
  Age: 59 Year
  Sex: Male
  Weight: 71 kg

DRUGS (3)
  1. FOSCAVIR [Suspect]
     Active Substance: FOSCARNET SODIUM
     Indication: CYTOMEGALOVIRUS INFECTION
     Dosage: 6 G, 24 HOURS (12 HOUR INFUSION FOLLOWED BY ANOTHER 12 HOUR INFUSION)
     Dates: start: 201409
  2. CIDOFOVIR. [Concomitant]
     Active Substance: CIDOFOVIR
  3. ONDANSETRON [Concomitant]
     Active Substance: ONDANSETRON

REACTIONS (5)
  - Vomiting [None]
  - Paraesthesia [None]
  - Off label use [None]
  - Nephropathy toxic [None]
  - Dizziness [None]

NARRATIVE: CASE EVENT DATE: 2014
